FAERS Safety Report 7829232-7 (Version None)
Quarter: 2011Q4

REPORT INFORMATION
  Report Type: 
  Country: None (occurrence: None)
  Receive Date: 20111020
  Receipt Date: 20111013
  Transmission Date: 20120403
  Serious: Yes (Hospitalization)
  Sender: FDA-Public Use
  Company Number: US-ASTRAZENECA-2010SE13681

PATIENT
  Age: 76 Year
  Sex: Female
  Weight: 58.5 kg

DRUGS (2)
  1. CRESTOR [Suspect]
     Route: 048
  2. NEXIUM [Suspect]
     Route: 048

REACTIONS (4)
  - BACK PAIN [None]
  - PAIN IN EXTREMITY [None]
  - CARDIAC FAILURE CONGESTIVE [None]
  - GASTRITIS [None]
